FAERS Safety Report 4278378-1 (Version None)
Quarter: 2004Q1

REPORT INFORMATION
  Report Type: 
  Country: None (occurrence: None)
  Receive Date: 20040123
  Receipt Date: 20040116
  Transmission Date: 20041129
  Serious: Yes (Hospitalization)
  Sender: FDA-Public Use
  Company Number: JP-ROCHE-356354

PATIENT
  Age: 15 Year
  Sex: Female

DRUGS (4)
  1. TAMIFLU [Suspect]
     Route: 048
     Dates: start: 20031229, end: 20040102
  2. CALONAL [Concomitant]
  3. ASTOMIN [Concomitant]
  4. HOKUNALIN [Concomitant]

REACTIONS (1)
  - ILEUS [None]
